FAERS Safety Report 6112377-X (Version None)
Quarter: 2009Q1

REPORT INFORMATION
  Report Type: 
  Country: None (occurrence: None)
  Receive Date: 20090311
  Receipt Date: 20090311
  Transmission Date: 20090719
  Serious: Yes (Other)
  Sender: FDA-Public Use
  Company Number: None

PATIENT
  Sex: Female
  Weight: 64.8644 kg

DRUGS (3)
  1. LEVOTHYROXINE SODIUM [Suspect]
     Indication: AUTOIMMUNE THYROIDITIS
     Dosage: 88 MCG 1 PER DAY 047, PAST- PROBABLY 3-4 YEARS AGO
  2. CLONAZEPAM [Suspect]
     Indication: MYOCLONUS
     Dosage: 1.5 MG AT BEDTIME 047, IN PAST (3-4 YRS) + PRESENTLY
  3. CLONAZEPAM [Suspect]
     Indication: SLEEP DISORDER
     Dosage: 1.5 MG AT BEDTIME 047, IN PAST (3-4 YRS) + PRESENTLY

REACTIONS (10)
  - ASTHENIA [None]
  - DECREASED ACTIVITY [None]
  - DRUG INEFFECTIVE [None]
  - FATIGUE [None]
  - HYPERTHYROIDISM [None]
  - HYPOTHYROIDISM [None]
  - MUSCLE SPASMS [None]
  - PALPITATIONS [None]
  - POOR QUALITY SLEEP [None]
  - THERAPEUTIC RESPONSE UNEXPECTED WITH DRUG SUBSTITUTION [None]
